FAERS Safety Report 14357123 (Version 2)
Quarter: 2018Q1

REPORT INFORMATION
  Report Type: Report from Study
  Country: US (occurrence: US)
  Receive Date: 20180105
  Receipt Date: 20180201
  Transmission Date: 20180509
  Serious: No
  Sender: FDA-Public Use
  Company Number: US-009507513-1712USA005175

PATIENT
  Sex: Female
  Weight: 78.91 kg

DRUGS (1)
  1. IMPLANON [Suspect]
     Active Substance: ETONOGESTREL
     Indication: CONTRACEPTION
     Dosage: 68 MG (1 ROD), UNK; STRENGTH: 68MG
     Route: 059
     Dates: start: 20170927, end: 2017

REACTIONS (3)
  - Implant site pain [Recovered/Resolved]
  - Skin disorder [Recovered/Resolved]
  - Implant site swelling [Recovered/Resolved]

NARRATIVE: CASE EVENT DATE: 2017
